FAERS Safety Report 24917255 (Version 4)
Quarter: 2025Q3

REPORT INFORMATION
  Report Type: Spontaneous
  Country: US (occurrence: US)
  Receive Date: 20250203
  Receipt Date: 20250923
  Transmission Date: 20251020
  Serious: Yes (Hospitalization, Other)
  Sender: SANOFI AVENTIS
  Company Number: US-SA-2025SA030895

PATIENT
  Age: 70 Year
  Sex: Female

DRUGS (4)
  1. DUPIXENT [Suspect]
     Active Substance: DUPILUMAB
     Indication: Chronic obstructive pulmonary disease
     Route: 058
     Dates: start: 20241206, end: 20241206
  2. DUPIXENT [Suspect]
     Active Substance: DUPILUMAB
     Indication: Multiple allergies
     Dosage: 300 MG, QOW
     Route: 058
     Dates: start: 202412
  3. ALBUTEROL SULFATE [Concomitant]
     Active Substance: ALBUTEROL SULFATE
  4. DUONEB [Concomitant]
     Active Substance: ALBUTEROL SULFATE\IPRATROPIUM BROMIDE

REACTIONS (18)
  - Clostridium difficile colitis [Unknown]
  - Pneumonia [Unknown]
  - Cardiac failure congestive [Unknown]
  - Fungal infection [Unknown]
  - Dyspnoea [Unknown]
  - Swelling [Unknown]
  - Urinary tract infection [Unknown]
  - Secretion discharge [Unknown]
  - Productive cough [Unknown]
  - Middle insomnia [Unknown]
  - Asthenia [Unknown]
  - Malaise [Unknown]
  - Chest discomfort [Unknown]
  - Headache [Unknown]
  - Injection site pain [Unknown]
  - Chronic obstructive pulmonary disease [Unknown]
  - Incorrect dose administered [Unknown]
  - Product use in unapproved indication [Unknown]

NARRATIVE: CASE EVENT DATE: 20241206
